FAERS Safety Report 4417869-7 (Version None)
Quarter: 2004Q3

REPORT INFORMATION
  Report Type: 
  Country: None (occurrence: None)
  Receive Date: 20040803
  Receipt Date: 20040720
  Transmission Date: 20050211
  Serious: Yes (Hospitalization)
  Sender: FDA-Public Use
  Company Number: CH-JNJFOC-20040705727

PATIENT
  Age: 89 Year
  Sex: Male

DRUGS (9)
  1. TRAMADOL HCL [Suspect]
     Indication: ARTHRALGIA
     Dosage: 100 MG, 2 IN 1 DAY, ORAL
     Route: 048
     Dates: end: 20040509
  2. ZAROTEN (AMITRIPTYLINE HYDROCHLORIDE) [Suspect]
     Indication: ARTHRALGIA
     Dosage: 50 MG , 1 IN 1 D, ORAL
     Route: 048
     Dates: end: 20040509
  3. ACETAMINOPHEN [Concomitant]
  4. NOVALGINE (METAMIZOLE SODIUM) [Concomitant]
  5. OMEPRAZOLE [Concomitant]
  6. PLAVIX [Concomitant]
  7. ASPIRIN [Concomitant]
  8. PHOSPHONORM (ALUMINIUM CLHORHYDROXIDE-COMPLEX) [Concomitant]
  9. CALCIUM CARBONATE (CALCIUM CARBONATE) [Concomitant]

REACTIONS (14)
  - AGITATION [None]
  - BLOOD CULTURE POSITIVE [None]
  - CONFUSIONAL STATE [None]
  - CSF TEST ABNORMAL [None]
  - DIZZINESS [None]
  - HALLUCINATION [None]
  - HEADACHE [None]
  - INFLAMMATION [None]
  - LOSS OF CONSCIOUSNESS [None]
  - MENTAL IMPAIRMENT [None]
  - MOVEMENT DISORDER [None]
  - SPEECH DISORDER [None]
  - STAPHYLOCOCCAL INFECTION [None]
  - THERAPY NON-RESPONDER [None]
